FAERS Safety Report 16446601 (Version 4)
Quarter: 2023Q2

REPORT INFORMATION
  Report Type: Spontaneous
  Country: CA (occurrence: CA)
  Receive Date: 20190618
  Receipt Date: 20230421
  Transmission Date: 20230722
  Serious: Yes (Hospitalization, Other)
  Sender: FDA-Public Use
  Company Number: PHHY2019CA134495

PATIENT
  Age: 48 Year
  Sex: Female
  Weight: 106 kg

DRUGS (141)
  1. ZOFRAN [Suspect]
     Active Substance: ONDANSETRON HYDROCHLORIDE
     Indication: Supportive care
     Dosage: 8 MG
     Route: 048
  2. ZOFRAN [Suspect]
     Active Substance: ONDANSETRON HYDROCHLORIDE
     Dosage: 8 MG, QD (1 EVERY 1 DAYS)
     Route: 048
  3. ZOFRAN [Suspect]
     Active Substance: ONDANSETRON HYDROCHLORIDE
     Dosage: UNK
     Route: 065
  4. ZOFRAN [Suspect]
     Active Substance: ONDANSETRON HYDROCHLORIDE
     Dosage: 8 MG
     Route: 048
  5. ZOFRAN [Suspect]
     Active Substance: ONDANSETRON HYDROCHLORIDE
     Dosage: 8 MG, QD (1 EVERY 1 DAYS)
     Route: 048
  6. DOXORUBICIN [Suspect]
     Active Substance: DOXORUBICIN
     Indication: Breast cancer
     Dosage: 136 MG, Q4H
     Route: 042
  7. DOXORUBICIN [Suspect]
     Active Substance: DOXORUBICIN
     Dosage: 136 MG
     Route: 042
  8. DOXORUBICIN [Suspect]
     Active Substance: DOXORUBICIN
     Dosage: 136 MG, Q2W (1 EVERY 2 WEEKS)
     Route: 042
  9. DOXORUBICIN [Suspect]
     Active Substance: DOXORUBICIN
     Dosage: 136 MG, Q2W (1 EVERY 2 WEEKS)
     Route: 042
  10. DOXORUBICIN [Suspect]
     Active Substance: DOXORUBICIN
     Dosage: 136 MG, Q2W (1 EVERY 2 WEEKS)
     Route: 042
  11. DOXORUBICIN [Suspect]
     Active Substance: DOXORUBICIN
     Dosage: UNK
     Route: 042
  12. LEVOFLOXACIN [Suspect]
     Active Substance: LEVOFLOXACIN
     Indication: Tardive dyskinesia
     Dosage: 500 ML
     Route: 048
  13. LEVOFLOXACIN [Suspect]
     Active Substance: LEVOFLOXACIN
     Dosage: UNK
     Route: 048
  14. LEVOFLOXACIN [Suspect]
     Active Substance: LEVOFLOXACIN
     Dosage: 500 MG, QD
     Route: 048
  15. LEVOFLOXACIN [Suspect]
     Active Substance: LEVOFLOXACIN
     Dosage: 500 MG
     Route: 048
  16. LEVOFLOXACIN [Suspect]
     Active Substance: LEVOFLOXACIN
     Dosage: 500 MG, QD
     Route: 048
  17. LEVOFLOXACIN [Suspect]
     Active Substance: LEVOFLOXACIN
     Dosage: 500 MG, QD
     Route: 048
  18. METOCLOPRAMIDE [Suspect]
     Active Substance: METOCLOPRAMIDE
     Indication: Tardive dyskinesia
     Dosage: 10 MG, Q6H
     Route: 048
  19. METOCLOPRAMIDE [Suspect]
     Active Substance: METOCLOPRAMIDE
     Dosage: 10 MG, QD, 1 EVERY 1 DAYS
     Route: 048
  20. METOCLOPRAMIDE [Suspect]
     Active Substance: METOCLOPRAMIDE
     Dosage: 10 MG, QID, 4 EVERY 1 DAYS
     Route: 048
  21. METOCLOPRAMIDE [Suspect]
     Active Substance: METOCLOPRAMIDE
     Dosage: 10 MG, QID, 4 EVERY 1 DAYS
     Route: 048
  22. RANITIDINE HYDROCHLORIDE [Suspect]
     Active Substance: RANITIDINE HYDROCHLORIDE
     Indication: Tardive dyskinesia
     Dosage: 150 MG, BID
     Route: 048
  23. RANITIDINE HYDROCHLORIDE [Suspect]
     Active Substance: RANITIDINE HYDROCHLORIDE
     Dosage: UNK
     Route: 048
  24. RANITIDINE HYDROCHLORIDE [Suspect]
     Active Substance: RANITIDINE HYDROCHLORIDE
     Dosage: 150 MG, Q12H
     Route: 048
  25. RANITIDINE HYDROCHLORIDE [Suspect]
     Active Substance: RANITIDINE HYDROCHLORIDE
     Dosage: 150 MG, Q2W
     Route: 048
  26. RANITIDINE HYDROCHLORIDE [Suspect]
     Active Substance: RANITIDINE HYDROCHLORIDE
     Dosage: 150 MG
     Route: 048
  27. RANITIDINE HYDROCHLORIDE [Suspect]
     Active Substance: RANITIDINE HYDROCHLORIDE
     Dosage: 150 MG, BID
     Route: 048
  28. RANITIDINE HYDROCHLORIDE [Suspect]
     Active Substance: RANITIDINE HYDROCHLORIDE
     Dosage: 150 MG
     Route: 048
  29. ONDANSETRON [Suspect]
     Active Substance: ONDANSETRON
     Indication: Supportive care
     Dosage: 8 MG, QD
     Route: 048
  30. ONDANSETRON [Suspect]
     Active Substance: ONDANSETRON
     Dosage: 8.0 MG
     Route: 065
  31. ONDANSETRON [Suspect]
     Active Substance: ONDANSETRON
     Dosage: 8.0 MG
     Route: 048
  32. ONDANSETRON [Suspect]
     Active Substance: ONDANSETRON
     Dosage: 8.0 MG
     Route: 048
  33. ONDANSETRON [Suspect]
     Active Substance: ONDANSETRON
     Dosage: UNK
     Route: 065
  34. ONDANSETRON [Suspect]
     Active Substance: ONDANSETRON
     Dosage: 8.0 MG
     Route: 048
  35. ONDANSETRON [Suspect]
     Active Substance: ONDANSETRON
     Dosage: UNK
     Route: 048
  36. ONDANSETRON [Suspect]
     Active Substance: ONDANSETRON
     Dosage: 8.0 MG
     Route: 048
  37. ONDANSETRON [Suspect]
     Active Substance: ONDANSETRON
     Dosage: 8.0 MG
     Route: 048
  38. ONDANSETRON [Suspect]
     Active Substance: ONDANSETRON
     Dosage: 8.0 MG
     Route: 048
  39. ONDANSETRON [Suspect]
     Active Substance: ONDANSETRON
     Dosage: 8.0 MG
     Route: 048
  40. ONDANSETRON [Suspect]
     Active Substance: ONDANSETRON
     Dosage: 8.0 MG
     Route: 048
  41. ONDANSETRON [Suspect]
     Active Substance: ONDANSETRON
     Dosage: 8 MG, QD
     Route: 048
  42. LORAZEPAM [Suspect]
     Active Substance: LORAZEPAM
     Indication: Tardive dyskinesia
     Dosage: 0.5 MG, Q48H, 2 EVERY 1 DAYS (DOSAGE FORM: NOT SPECIFIED)
     Route: 048
  43. LORAZEPAM [Suspect]
     Active Substance: LORAZEPAM
     Dosage: 0.5 MG, BID (2 EVERY 1 DAYS)
     Route: 048
  44. LORAZEPAM [Suspect]
     Active Substance: LORAZEPAM
     Dosage: 0.5 MG, Q12H, 1 EVERY 12 HOURS
     Route: 048
  45. LORAZEPAM [Suspect]
     Active Substance: LORAZEPAM
     Dosage: 0.5 MG, QD (1 EVERY 1 DAYS)
     Route: 048
  46. LORAZEPAM [Suspect]
     Active Substance: LORAZEPAM
     Dosage: 0.5 MG, BID (2 EVERY 1 DAYS)
     Route: 048
  47. LORAZEPAM [Suspect]
     Active Substance: LORAZEPAM
     Dosage: 0.5 MG, BID (2 EVERY 1 DAYS)
     Route: 048
  48. LORAZEPAM [Suspect]
     Active Substance: LORAZEPAM
     Dosage: 0.5 MG
     Route: 048
  49. PACLITAXEL [Suspect]
     Active Substance: PACLITAXEL
     Indication: Supportive care
     Dosage: 303 MG (FORMULATION: LIQUID INTRAVENOUS)
     Route: 042
  50. PACLITAXEL [Suspect]
     Active Substance: PACLITAXEL
     Indication: Breast cancer
     Dosage: 393 MG, QD (1 EVERY 1 DAYS)
     Route: 042
  51. PACLITAXEL [Suspect]
     Active Substance: PACLITAXEL
     Dosage: 393 MG, QD (1 EVERY 1 DAYS)
     Route: 042
  52. PACLITAXEL [Suspect]
     Active Substance: PACLITAXEL
     Dosage: 243 MG, QD (1 EVERY 1 DAYS)
     Route: 042
  53. PACLITAXEL [Suspect]
     Active Substance: PACLITAXEL
     Dosage: 243 MG
     Route: 042
  54. PACLITAXEL [Suspect]
     Active Substance: PACLITAXEL
     Dosage: 303 MG
     Route: 042
  55. PACLITAXEL [Suspect]
     Active Substance: PACLITAXEL
     Dosage: 303 MG
     Route: 042
  56. PACLITAXEL [Suspect]
     Active Substance: PACLITAXEL
     Dosage: 393 MG
     Route: 042
  57. PACLITAXEL [Suspect]
     Active Substance: PACLITAXEL
     Dosage: 393 MG
     Route: 042
  58. NEUPOGEN [Suspect]
     Active Substance: FILGRASTIM
     Indication: Supportive care
     Dosage: 480 UG, QD (1 EVERY 1 DAYS)
     Route: 048
  59. NEUPOGEN [Suspect]
     Active Substance: FILGRASTIM
     Dosage: 480 UG, QD (1 EVERY 1 DAYS)
     Route: 065
  60. NEUPOGEN [Suspect]
     Active Substance: FILGRASTIM
     Dosage: 125 UG, QD (1 EVERY 1 DAYS)
     Route: 048
  61. NEUPOGEN [Suspect]
     Active Substance: FILGRASTIM
     Dosage: 480 UG, QD (1 EVERY 1 DAYS)
     Route: 042
  62. NEUPOGEN [Suspect]
     Active Substance: FILGRASTIM
     Dosage: 480 UG, QD (1 EVERY 1 DAYS)
     Route: 065
  63. NEUPOGEN [Suspect]
     Active Substance: FILGRASTIM
     Dosage: 480 UG, QD (1 EVERY 1 DAYS)
     Route: 065
  64. NEUPOGEN [Suspect]
     Active Substance: FILGRASTIM
     Dosage: 480 UG, QD (1 EVERY 1 DAYS)
     Route: 065
  65. NEUPOGEN [Suspect]
     Active Substance: FILGRASTIM
     Dosage: 125 MG, QD (1 EVERY 1 DAYS)
     Route: 048
  66. NEULASTA [Suspect]
     Active Substance: PEGFILGRASTIM
     Indication: Supportive care
     Dosage: 6 MG
     Route: 058
  67. NEULASTA [Suspect]
     Active Substance: PEGFILGRASTIM
     Dosage: 6 MG
     Route: 058
  68. NEULASTA [Suspect]
     Active Substance: PEGFILGRASTIM
     Dosage: 6 MG
     Route: 058
  69. NEULASTA [Suspect]
     Active Substance: PEGFILGRASTIM
     Dosage: 6 MG, QD (1 EVERY 1 DAYS, FORMULATION: SOLUTION SUBCUTANEOUS))
     Route: 058
  70. NEULASTA [Suspect]
     Active Substance: PEGFILGRASTIM
     Dosage: 6 MG
     Route: 058
  71. NEULASTA [Suspect]
     Active Substance: PEGFILGRASTIM
     Dosage: 6 MG
     Route: 058
  72. NEULASTA [Suspect]
     Active Substance: PEGFILGRASTIM
     Dosage: 6 MG
     Route: 058
  73. ENOXAPARIN [Suspect]
     Active Substance: ENOXAPARIN
     Indication: Tardive dyskinesia
     Dosage: 150 MG, QD (1 EVERY 1 DAYS)
     Route: 058
  74. ENOXAPARIN [Suspect]
     Active Substance: ENOXAPARIN
     Dosage: UNK
     Route: 058
  75. ENOXAPARIN [Suspect]
     Active Substance: ENOXAPARIN
     Dosage: 150 MG, QD (1 EVERY 1 DAYS)
     Route: 058
  76. ENOXAPARIN [Suspect]
     Active Substance: ENOXAPARIN
     Dosage: 150 MG, QD (1 EVERY 1 DAYS)
     Route: 058
  77. DEXAMETHASONE [Suspect]
     Active Substance: DEXAMETHASONE
     Indication: Supportive care
     Dosage: 20 MG, QD (1 EVERY 1 DAYS)
     Route: 048
  78. DEXAMETHASONE [Suspect]
     Active Substance: DEXAMETHASONE
     Dosage: 20 MG, QD (1 EVERY 1 DAYS)
     Route: 048
  79. DEXAMETHASONE [Suspect]
     Active Substance: DEXAMETHASONE
     Dosage: 20 MG, QD (1 EVERY 1 DAYS)
     Route: 048
  80. DEXAMETHASONE [Suspect]
     Active Substance: DEXAMETHASONE
     Dosage: 20 MG, QD (1 EVERY 1 DAYS)
     Route: 048
  81. DEXAMETHASONE [Suspect]
     Active Substance: DEXAMETHASONE
     Dosage: 20 MG, QD (1 EVERY 1 DAYS)
     Route: 048
  82. DEXAMETHASONE [Suspect]
     Active Substance: DEXAMETHASONE
     Dosage: 20 MG, QD (1 EVERY 1 DAYS)
     Route: 048
  83. DEXAMETHASONE [Suspect]
     Active Substance: DEXAMETHASONE
     Dosage: UNK
     Route: 048
  84. BETAMETHASONE [Suspect]
     Active Substance: BETAMETHASONE
     Indication: Tardive dyskinesia
     Dosage: UNK UNK, BID (2 EVERY 1 DAYS)
     Route: 065
  85. BETAMETHASONE [Suspect]
     Active Substance: BETAMETHASONE
     Dosage: UNK UNK, BID (2 EVERY 1 DAYS)
     Route: 065
  86. BETAMETHASONE [Suspect]
     Active Substance: BETAMETHASONE
     Dosage: UNK
     Route: 048
  87. BETAMETHASONE [Suspect]
     Active Substance: BETAMETHASONE
     Dosage: UNK, Q12H (1 EVERY 12 HOURS)
     Route: 048
  88. TRASTUZUMAB [Suspect]
     Active Substance: TRASTUZUMAB
     Indication: Tardive dyskinesia
     Dosage: 866 MG, QD (1 EVERY 1 DAYS)
     Route: 065
  89. TRASTUZUMAB [Suspect]
     Active Substance: TRASTUZUMAB
     Dosage: 626 MG
     Route: 065
  90. TRASTUZUMAB [Suspect]
     Active Substance: TRASTUZUMAB
     Dosage: 866 MG, QD (1 EVERY 1 DAYS)
     Route: 065
  91. TRASTUZUMAB [Suspect]
     Active Substance: TRASTUZUMAB
     Dosage: 626 MG, QD (1 EVERY 1 DAYS)
     Route: 065
  92. TRASTUZUMAB [Suspect]
     Active Substance: TRASTUZUMAB
     Dosage: 866 MG
     Route: 065
  93. TRASTUZUMAB [Suspect]
     Active Substance: TRASTUZUMAB
     Dosage: UNK
     Route: 050
  94. TRASTUZUMAB [Suspect]
     Active Substance: TRASTUZUMAB
     Dosage: 626 MG, QD (1 EVERY 1 DAYS)
     Route: 065
  95. TRASTUZUMAB [Suspect]
     Active Substance: TRASTUZUMAB
     Dosage: UNK
     Route: 048
  96. TRASTUZUMAB [Suspect]
     Active Substance: TRASTUZUMAB
     Dosage: UNK
     Route: 065
  97. TRASTUZUMAB [Suspect]
     Active Substance: TRASTUZUMAB
     Dosage: UNK
     Route: 065
  98. TRASTUZUMAB [Suspect]
     Active Substance: TRASTUZUMAB
     Dosage: 626 MG
     Route: 065
  99. TRASTUZUMAB [Suspect]
     Active Substance: TRASTUZUMAB
     Dosage: 626 MG
     Route: 065
  100. TRASTUZUMAB [Suspect]
     Active Substance: TRASTUZUMAB
     Dosage: 626 MG
     Route: 065
  101. CYCLOPHOSPHAMIDE [Suspect]
     Active Substance: CYCLOPHOSPHAMIDE
     Indication: Breast cancer
     Dosage: UNK
     Route: 065
  102. CYCLOPHOSPHAMIDE [Suspect]
     Active Substance: CYCLOPHOSPHAMIDE
     Indication: Tardive dyskinesia
     Dosage: 1360 MG, Q2W (1 EVERY 2WEEKS)
     Route: 042
  103. CYCLOPHOSPHAMIDE [Suspect]
     Active Substance: CYCLOPHOSPHAMIDE
     Dosage: 1360 MG, Q2W (1 EVERY 2WEEKS)
     Route: 042
  104. CYCLOPHOSPHAMIDE [Suspect]
     Active Substance: CYCLOPHOSPHAMIDE
     Dosage: 1360 MG, Q2W (1 EVERY 2WEEKS)
     Route: 042
  105. CYCLOPHOSPHAMIDE [Suspect]
     Active Substance: CYCLOPHOSPHAMIDE
     Dosage: 1360 MG
     Route: 042
  106. CYCLOPHOSPHAMIDE [Suspect]
     Active Substance: CYCLOPHOSPHAMIDE
     Dosage: UNK
     Route: 065
  107. ACETAMINOPHEN AND CODEINE [Suspect]
     Active Substance: ACETAMINOPHEN\CODEINE PHOSPHATE
     Indication: Tardive dyskinesia
     Dosage: 30 MG, Q4H
     Route: 065
  108. ACETAMINOPHEN AND CODEINE [Suspect]
     Active Substance: ACETAMINOPHEN\CODEINE PHOSPHATE
     Dosage: 30 MG, Q4H
     Route: 065
  109. ACETAMINOPHEN AND CODEINE [Suspect]
     Active Substance: ACETAMINOPHEN\CODEINE PHOSPHATE
     Dosage: 30 MG, QD
     Route: 065
  110. ACETAMINOPHEN AND CODEINE [Suspect]
     Active Substance: ACETAMINOPHEN\CODEINE PHOSPHATE
     Dosage: 30 MG, QD
     Route: 065
  111. ACETAMINOPHEN AND CODEINE [Suspect]
     Active Substance: ACETAMINOPHEN\CODEINE PHOSPHATE
     Dosage: 30 MG, QD
     Route: 065
  112. ACETAMINOPHEN AND CODEINE [Suspect]
     Active Substance: ACETAMINOPHEN\CODEINE PHOSPHATE
     Dosage: 30 MG, Q4H
     Route: 065
  113. ACETAMINOPHEN AND CODEINE [Suspect]
     Active Substance: ACETAMINOPHEN\CODEINE PHOSPHATE
     Dosage: UNK
     Route: 065
  114. ACETAMINOPHEN AND CODEINE [Suspect]
     Active Substance: ACETAMINOPHEN\CODEINE PHOSPHATE
     Indication: Tardive dyskinesia
     Dosage: 30 MG, QD (FORMULATION: ELIXIR)
     Route: 065
  115. APREPITANT [Suspect]
     Active Substance: APREPITANT
     Indication: Supportive care
     Dosage: 125 MG
     Route: 048
  116. APREPITANT [Suspect]
     Active Substance: APREPITANT
     Dosage: 125 MG
     Route: 048
  117. APREPITANT [Suspect]
     Active Substance: APREPITANT
     Dosage: 80 MG, QD (1 EVERY 1 DAYS)
     Route: 048
  118. APREPITANT [Suspect]
     Active Substance: APREPITANT
     Dosage: 80 MG, QD (1 EVERY 1 DAYS)
     Route: 048
  119. APREPITANT [Suspect]
     Active Substance: APREPITANT
     Dosage: 125 MG, QD (1 EVERY 1 DAYS)
     Route: 048
  120. EMEND [Suspect]
     Active Substance: APREPITANT
     Indication: Supportive care
     Dosage: 80 MG, QD (1 EVERY 1 DAYS)
     Route: 048
  121. EMEND [Suspect]
     Active Substance: APREPITANT
     Dosage: 125 MG, QD
     Route: 048
  122. EMEND [Suspect]
     Active Substance: APREPITANT
     Dosage: 125 MG
     Route: 048
  123. EMEND [Suspect]
     Active Substance: APREPITANT
     Dosage: 125 MG
     Route: 048
  124. EMEND [Suspect]
     Active Substance: APREPITANT
     Dosage: 80 MG, QD
     Route: 048
  125. EMEND [Suspect]
     Active Substance: APREPITANT
     Dosage: 125 MG, QD
     Route: 048
  126. EMEND [Suspect]
     Active Substance: APREPITANT
     Dosage: 125 MG, QD
     Route: 048
  127. EMEND [Suspect]
     Active Substance: APREPITANT
     Dosage: 125 MG, QD
     Route: 048
  128. EMEND [Suspect]
     Active Substance: APREPITANT
     Dosage: 125 MG, QD
     Route: 048
  129. EMEND [Suspect]
     Active Substance: APREPITANT
     Dosage: 125 MG, QD
     Route: 048
  130. EMEND [Suspect]
     Active Substance: APREPITANT
     Dosage: 80 MG, QD (1 EVERY 1 DAYS)
     Route: 048
  131. EMEND [Suspect]
     Active Substance: APREPITANT
     Dosage: 80 MG, QD (1 EVERY 1 DAYS)
     Route: 048
  132. EMEND [Suspect]
     Active Substance: APREPITANT
     Dosage: 80 MG, QD (1 EVERY 1 DAYS)
     Route: 048
  133. EMEND [Suspect]
     Active Substance: APREPITANT
     Dosage: 80 MG, QD (1 EVERY 1 DAYS)
     Route: 048
  134. EMEND [Suspect]
     Active Substance: APREPITANT
     Dosage: 80 MG, QD (1 EVERY 1 DAYS)
     Route: 048
  135. EMEND [Suspect]
     Active Substance: APREPITANT
     Dosage: 80 MG, QD (1 EVERY 1 DAYS)
     Route: 048
  136. EMEND [Suspect]
     Active Substance: APREPITANT
     Dosage: 80 MG, QD (1 EVERY 1 DAYS)
     Route: 048
  137. EMEND [Suspect]
     Active Substance: APREPITANT
     Dosage: 80 MG, QD (1 EVERY 1 DAYS)
     Route: 048
  138. EMEND [Suspect]
     Active Substance: APREPITANT
     Dosage: UNK
     Route: 048
  139. EMEND [Suspect]
     Active Substance: APREPITANT
     Dosage: UNK
     Route: 048
  140. EMEND [Suspect]
     Active Substance: APREPITANT
     Dosage: UNK
     Route: 048
  141. EMEND [Suspect]
     Active Substance: APREPITANT
     Dosage: UNK
     Route: 048

REACTIONS (12)
  - Atelectasis [Recovered/Resolved]
  - Gastrointestinal disorder [Recovered/Resolved]
  - Computerised tomogram thorax abnormal [Recovered/Resolved]
  - Fatigue [Recovered/Resolved]
  - Dyspnoea [Recovered/Resolved]
  - Nausea [Recovered/Resolved]
  - Cough [Recovered/Resolved]
  - Rash [Recovered/Resolved]
  - Hypoxia [Recovered/Resolved]
  - Pyrexia [Recovered/Resolved]
  - Computerised tomogram thorax [Recovered/Resolved]
  - Off label use [Recovered/Resolved]
